FAERS Safety Report 11148351 (Version 1)
Quarter: 2015Q2

REPORT INFORMATION
  Report Type: Spontaneous
  Country: GB (occurrence: GB)
  Receive Date: 20150529
  Receipt Date: 20150529
  Transmission Date: 20150821
  Serious: Yes (Other)
  Sender: FDA-Public Use
  Company Number: GB-PFIZER INC-2015153368

PATIENT
  Age: 14 Month
  Sex: Male
  Weight: 13 kg

DRUGS (8)
  1. LIGNOCAINE [Suspect]
     Active Substance: LIDOCAINE HYDROCHLORIDE
     Indication: VENTRICULAR TACHYCARDIA
     Dosage: 0.9 MG/KG/H
  2. ESMOLOL [Suspect]
     Active Substance: ESMOLOL HYDROCHLORIDE
     Dosage: UNK
     Route: 065
  3. AMIODARONE HCL [Suspect]
     Active Substance: AMIODARONE HYDROCHLORIDE
     Dosage: 15 MCG/KG/MIN
     Route: 065
  4. CALCIUM CHLORIDE. [Suspect]
     Active Substance: CALCIUM CHLORIDE
     Indication: VENTRICULAR TACHYCARDIA
     Dosage: UNK
  5. FLECAINIDE [Suspect]
     Active Substance: FLECAINIDE
     Indication: VENTRICULAR TACHYCARDIA
     Dosage: 2 MG/KG, UNK
     Route: 040
  6. AMIODARONE HCL [Suspect]
     Active Substance: AMIODARONE HYDROCHLORIDE
     Dosage: 12 MCG/KG/MIN
     Route: 065
  7. AMIODARONE HCL [Suspect]
     Active Substance: AMIODARONE HYDROCHLORIDE
     Indication: VENTRICULAR TACHYCARDIA
     Dosage: 5 MG/KG, UNK
     Route: 065
  8. MAGNESIUM SULFATE. [Suspect]
     Active Substance: MAGNESIUM SULFATE
     Indication: VENTRICULAR TACHYCARDIA
     Dosage: UNK

REACTIONS (4)
  - Circulatory collapse [Recovered/Resolved]
  - Drug administered to patient of inappropriate age [Unknown]
  - Cardiac arrest [Recovered/Resolved]
  - Cardiac output decreased [Recovered/Resolved]
